FAERS Safety Report 18688075 (Version 1)
Quarter: 2020Q4

REPORT INFORMATION
  Report Type: Spontaneous
  Country: US (occurrence: US)
  Receive Date: 20201230
  Receipt Date: 20201230
  Transmission Date: 20210114
  Serious: Yes (Other)
  Sender: FDA-Public Use
  Company Number: None

PATIENT
  Age: 58 Year
  Sex: Male
  Weight: 121.4 kg

DRUGS (4)
  1. AMLODIPINE [Concomitant]
     Active Substance: AMLODIPINE BESYLATE
  2. LOSARTAN. [Concomitant]
     Active Substance: LOSARTAN
  3. DOXAZOSINE [Concomitant]
     Active Substance: DOXAZOSIN MESYLATE
  4. IMBRUVICA [Suspect]
     Active Substance: IBRUTINIB
     Indication: CHRONIC LYMPHOCYTIC LEUKAEMIA
     Route: 048

REACTIONS (7)
  - Dizziness [None]
  - Abdominal distension [None]
  - Disease progression [None]
  - Asthenia [None]
  - Hypertension [None]
  - Food intolerance [None]
  - Drug intolerance [None]

NARRATIVE: CASE EVENT DATE: 20201229
